FAERS Safety Report 8270059-2 (Version None)
Quarter: 2012Q1

REPORT INFORMATION
  Report Type: 
  Country: None (occurrence: None)
  Receive Date: 20120327
  Receipt Date: 20090821
  Transmission Date: 20120608
  Serious: Yes (Other)
  Sender: FDA-Public Use
  Company Number: PHEH2009US09712

PATIENT
  Sex: Female

DRUGS (10)
  1. CYMBALTA [Concomitant]
  2. FUROSEMIDE [Concomitant]
  3. CARDIZEM LA/OLD FORM/ (DILTIAZEM) [Concomitant]
  4. POTASSIUM CHLORIDE [Concomitant]
  5. SPIRONOLACTONE [Concomitant]
  6. HYDRALAZINE HCL [Concomitant]
  7. DIGOXIN [Concomitant]
  8. SYMBICORT [Concomitant]
  9. PROVENTIL [Concomitant]
  10. GLEEVEC [Suspect]
     Indication: CHRONIC MYELOID LEUKAEMIA
     Dosage: 400 MG, QD, ORAL
     Route: 048
     Dates: start: 20070301

REACTIONS (3)
  - VOMITING [None]
  - NAUSEA [None]
  - ANAEMIA [None]
